FAERS Safety Report 4866894-0 (Version None)
Quarter: 2005Q4

REPORT INFORMATION
  Report Type: 
  Country: None (occurrence: None)
  Receive Date: 20051222
  Receipt Date: 20051205
  Transmission Date: 20060501
  Serious: Yes (Other)
  Sender: FDA-Public Use
  Company Number: CA200512000913

PATIENT
  Sex: Male

DRUGS (2)
  1. HUMULIN NPH(HUMAN INSULIN (RDNA ORIGIN) NPH) CARTRIDGE [Suspect]
     Indication: DIABETES MELLITUS
     Dosage: SUBCUTANEOUS
     Route: 058
  2. HUMALOG [Suspect]
     Indication: DIABETES MELLITUS

REACTIONS (4)
  - BLOOD GLUCOSE INCREASED [None]
  - DRUG INEFFECTIVE [None]
  - LIVER TRANSPLANT [None]
  - PHARMACEUTICAL PRODUCT COMPLAINT [None]
